FAERS Safety Report 5800582-9 (Version None)
Quarter: 2008Q3

REPORT INFORMATION
  Report Type: 
  Country: None (occurrence: None)
  Receive Date: 20080701
  Receipt Date: 20080617
  Transmission Date: 20090109
  Serious: Yes (Other)
  Sender: FDA-Public Use
  Company Number: 6043697

PATIENT
  Age: 75 Year
  Sex: Male

DRUGS (5)
  1. BICOR (TABLET) (BISOPROLOL FUMARATE) [Suspect]
     Indication: CARDIAC DISORDER
     Dosage: 5 MG (5 MG, 1 IN 1 D); ORAL
     Route: 048
     Dates: start: 20080506
  2. KARVEZIDE (HYDROCHLOROTHIAZIDE, IRBESARTAN) [Concomitant]
  3. VYTORIN [Concomitant]
  4. ASPIRIN [Concomitant]
  5. MACUVISION [Concomitant]

REACTIONS (9)
  - EYE PRURITUS [None]
  - FATIGUE [None]
  - HYPOACUSIS [None]
  - INSOMNIA [None]
  - MACULAR DEGENERATION [None]
  - PALLOR [None]
  - PERIPHERAL COLDNESS [None]
  - PRURITUS [None]
  - SLEEP DISORDER [None]
